FAERS Safety Report 4804257-4 (Version None)
Quarter: 2005Q4

REPORT INFORMATION
  Report Type: 
  Country: None (occurrence: None)
  Receive Date: 20051020
  Receipt Date: 20051010
  Transmission Date: 20060501
  Serious: Yes (Hospitalization)
  Sender: FDA-Public Use
  Company Number: US-JNJFOC-20051002402

PATIENT
  Sex: Female

DRUGS (1)
  1. DURAGESIC-100 [Suspect]
     Dosage: TWO 75 UG/HR PATCHES
     Route: 062

REACTIONS (4)
  - DYSPNOEA [None]
  - FALL [None]
  - MALAISE [None]
  - PAIN [None]
